FAERS Safety Report 13508062 (Version 2)
Quarter: 2017Q2

REPORT INFORMATION
  Report Type: Spontaneous
  Country: NL (occurrence: NL)
  Receive Date: 20170503
  Receipt Date: 20170522
  Transmission Date: 20170830
  Serious: Yes (Death)
  Sender: FDA-Public Use
  Company Number: NL-ROCHE-1930016

PATIENT
  Age: 79 Year
  Sex: Male

DRUGS (11)
  1. DICLOFENAC [Concomitant]
     Active Substance: DICLOFENAC
     Dosage: 3X50MG
     Route: 065
     Dates: start: 20160822
  2. ETANERCEPT [Concomitant]
     Active Substance: ETANERCEPT
     Route: 058
     Dates: start: 20130801, end: 20131001
  3. PANTOPRAZOL [Concomitant]
     Active Substance: PANTOPRAZOLE SODIUM
     Dosage: 1
     Route: 065
     Dates: start: 20160822
  4. TOCILIZUMAB [Suspect]
     Active Substance: TOCILIZUMAB
     Indication: PRODUCT USED FOR UNKNOWN INDICATION
     Dosage: 20MG/ML?DATE OF LAST DOSE PRIOR TO SAE 9/AUG/2016
     Route: 042
     Dates: start: 20131101, end: 20160822
  5. CALCIUM D3 [Concomitant]
     Active Substance: CALCIUM\CHOLECALCIFEROL
     Dosage: 500/800 DAILY
     Route: 065
     Dates: start: 20131223
  6. METHOTREXATE. [Concomitant]
     Active Substance: METHOTREXATE
     Route: 065
     Dates: start: 2002, end: 201609
  7. FENTANYL. [Concomitant]
     Active Substance: FENTANYL
     Dosage: 50
     Route: 065
     Dates: start: 20160822
  8. METHOTREXATE. [Suspect]
     Active Substance: METHOTREXATE
     Indication: PRODUCT USED FOR UNKNOWN INDICATION
     Route: 065
     Dates: start: 20121101, end: 20160825
  9. ADALIMUMAB [Concomitant]
     Active Substance: ADALIMUMAB
     Route: 065
     Dates: start: 20090401, end: 20130801
  10. PARACETAMOL [Concomitant]
     Active Substance: ACETAMINOPHEN
     Dosage: 3 X 1000
     Route: 065
     Dates: start: 20160822
  11. FOLIC ACID. [Concomitant]
     Active Substance: FOLIC ACID
     Route: 065

REACTIONS (3)
  - Prostate cancer [Fatal]
  - Metastases to bone [Fatal]
  - Pneumonia [Fatal]

NARRATIVE: CASE EVENT DATE: 20160825
